FAERS Safety Report 19656249 (Version 1)
Quarter: 2021Q3

REPORT INFORMATION
  Report Type: Spontaneous
  Country: US (occurrence: US)
  Receive Date: 20210802
  Receipt Date: 20210802
  Transmission Date: 20211014
  Serious: Yes (Other)
  Sender: FDA-Public Use
  Company Number: None

PATIENT
  Age: 55 Year
  Sex: Female
  Weight: 68.04 kg

DRUGS (2)
  1. BUPROPION 100MG SR [Suspect]
     Active Substance: BUPROPION HYDROCHLORIDE
     Indication: TINNITUS
     Route: 048
     Dates: start: 20130809, end: 20130902
  2. BUPROPION 100MG SR [Suspect]
     Active Substance: BUPROPION HYDROCHLORIDE
     Indication: TINNITUS
     Route: 048

REACTIONS (2)
  - Product substitution issue [None]
  - Tinnitus [None]

NARRATIVE: CASE EVENT DATE: 20130809
